FAERS Safety Report 13054087 (Version 2)
Quarter: 2017Q1

REPORT INFORMATION
  Report Type: Spontaneous
  Country: US (occurrence: US)
  Receive Date: 20161222
  Receipt Date: 20170305
  Transmission Date: 20170428
  Serious: Yes (Other)
  Sender: FDA-Public Use
  Company Number: US-ASTRAZENECA-2016SF32982

PATIENT
  Age: 927 Month
  Sex: Female

DRUGS (2)
  1. TUDORZA PRESSAIR [Suspect]
     Active Substance: ACLIDINIUM BROMIDE
     Indication: ASTHMA
     Dosage: 400 MCG, 1 INHALATION TWICE A DAY
     Route: 055
     Dates: start: 201601
  2. TUDORZA PRESSAIR [Suspect]
     Active Substance: ACLIDINIUM BROMIDE
     Indication: DYSPNOEA
     Dosage: 400 MCG, 1 INHALATION TWICE A DAY
     Route: 055
     Dates: start: 201601

REACTIONS (8)
  - Overdose [Unknown]
  - Product use issue [Unknown]
  - Weight increased [Unknown]
  - Blindness [Unknown]
  - Intentional device misuse [Unknown]
  - Memory impairment [Unknown]
  - Off label use [Unknown]
  - Product quality issue [Unknown]

NARRATIVE: CASE EVENT DATE: 201601
